FAERS Safety Report 22131009 (Version 2)
Quarter: 2023Q1

REPORT INFORMATION
  Report Type: Report from Study
  Country: DO (occurrence: DO)
  Receive Date: 20230323
  Receipt Date: 20230324
  Transmission Date: 20230418
  Serious: No
  Sender: FDA-Public Use
  Company Number: DO-002147023-NVSC2023DO062660

PATIENT
  Sex: Male

DRUGS (1)
  1. SECUKINUMAB [Suspect]
     Active Substance: SECUKINUMAB
     Indication: Psoriasis
     Dosage: 300 MG, QW
     Route: 058
     Dates: start: 20230307

REACTIONS (7)
  - Inflammation [Not Recovered/Not Resolved]
  - Pain in extremity [Unknown]
  - Finger deformity [Unknown]
  - Neoplasm [Unknown]
  - Viral infection [Unknown]
  - Pain [Unknown]
  - Pruritus [Unknown]
